FAERS Safety Report 9280369 (Version 1)
Quarter: 2013Q2

REPORT INFORMATION
  Report Type: Spontaneous
  Country: US (occurrence: US)
  Receive Date: 20130509
  Receipt Date: 20130509
  Transmission Date: 20140414
  Serious: Yes (Other)
  Sender: FDA-Public Use
  Company Number: US-BAYER-2013-056106

PATIENT
  Age: 68 Year
  Sex: Female

DRUGS (15)
  1. ALEVE CAPLET [Suspect]
     Indication: PREMEDICATION
     Dosage: 2 DF, UNK
     Dates: start: 20121120
  2. ALEVE CAPLET [Suspect]
     Indication: INFLUENZA LIKE ILLNESS
     Dosage: 1 UNK, UNK
  3. REBIF [Suspect]
     Indication: MULTIPLE SCLEROSIS
     Dosage: 44 MCG/24HR, Q3WK
     Route: 058
     Dates: start: 20121120
  4. DEXILANT [Concomitant]
     Indication: GASTROOESOPHAGEAL REFLUX DISEASE
     Dosage: UNK
     Dates: end: 201303
  5. OMEPRAZOLE [Concomitant]
     Indication: GASTROOESOPHAGEAL REFLUX DISEASE
     Dosage: UNK
     Dates: start: 201303
  6. BABY ASPIRIN [Concomitant]
     Indication: ROUTINE HEALTH MAINTENANCE
     Dosage: UNK
     Dates: end: 201303
  7. MICARDIS [Concomitant]
     Indication: HYPERTENSION
     Dosage: 80/12.5
  8. SYNTHROID [Concomitant]
     Indication: THYROID CANCER
     Dosage: 175 MCG/24HR, UNK
  9. VYTORIN [Concomitant]
     Indication: BLOOD CHOLESTEROL INCREASED
     Dosage: 10/40
  10. GABAPENTIN [Concomitant]
     Indication: HYPOAESTHESIA
     Dosage: 100 MG, 3-4 TIMES PER DAY
  11. FLUTICASONE [Concomitant]
     Indication: NASAL OBSTRUCTION
     Dosage: 2 SPRAYS
     Route: 045
  12. ZOLPIDEM [Concomitant]
     Indication: INSOMNIA
     Dosage: UNK
  13. ADVAIR [Concomitant]
     Indication: NASAL OBSTRUCTION
     Dosage: 250
  14. SINGULAIR [Concomitant]
     Indication: NASAL OBSTRUCTION
     Dosage: UNK UNK, QD
  15. CARAFATE [Concomitant]
     Dosage: 4 TIMES A DAY

REACTIONS (8)
  - Gastric ulcer haemorrhage [None]
  - Fatigue [None]
  - Anaemia [None]
  - Sinusitis [None]
  - Injection site pain [Not Recovered/Not Resolved]
  - Dry mouth [None]
  - Muscle spasms [None]
  - Abdominal pain upper [None]
